FAERS Safety Report 12097198 (Version 1)
Quarter: 2016Q1

REPORT INFORMATION
  Report Type: Other
  Country: US (occurrence: US)
  Receive Date: 20160221
  Receipt Date: 20160221
  Transmission Date: 20160526
  Serious: No
  Sender: FDA-Public Use
  Company Number: US-ACORDA-ACO_110685_2015

PATIENT

DRUGS (1)
  1. AMPYRA [Suspect]
     Active Substance: DALFAMPRIDINE
     Indication: PRODUCT USED FOR UNKNOWN INDICATION
     Route: 065

REACTIONS (6)
  - Hypoaesthesia [Unknown]
  - Dysstasia [Unknown]
  - Limb discomfort [Unknown]
  - Pruritus [Unknown]
  - Fatigue [Unknown]
  - Insomnia [Unknown]
